FAERS Safety Report 8334378-3 (Version None)
Quarter: 2012Q2

REPORT INFORMATION
  Report Type: 
  Country: None (occurrence: None)
  Receive Date: 20120503
  Receipt Date: 20120424
  Transmission Date: 20120825
  Serious: Yes (Other)
  Sender: FDA-Public Use
  Company Number: US-ELI_LILLY_AND_COMPANY-US201204008574

PATIENT
  Sex: Male

DRUGS (2)
  1. ALIMTA [Suspect]
     Dosage: UNK, UNKNOWN
  2. AVASTIN [Concomitant]

REACTIONS (2)
  - HAEMOPTYSIS [None]
  - FATIGUE [None]
